FAERS Safety Report 12045591 (Version 1)
Quarter: 2016Q1

REPORT INFORMATION
  Report Type: Spontaneous
  Country: FR (occurrence: FR)
  Receive Date: 20160208
  Receipt Date: 20160208
  Transmission Date: 20160526
  Serious: Yes (Other)
  Sender: FDA-Public Use
  Company Number: FR-GILEAD-2016-0195928

PATIENT
  Sex: Male

DRUGS (3)
  1. SOVALDI [Suspect]
     Active Substance: SOFOSBUVIR
     Indication: HEPATITIS C
     Dosage: UNK
     Route: 065
     Dates: start: 20160108
  2. RIBAVIRIN. [Concomitant]
     Active Substance: RIBAVIRIN
     Dosage: UNK
     Dates: start: 20160108
  3. DACLATASVIR. [Concomitant]
     Active Substance: DACLATASVIR
     Dosage: UNK
     Dates: start: 20160108

REACTIONS (1)
  - Altered state of consciousness [Unknown]
